FAERS Safety Report 5218654-9 (Version None)
Quarter: 2007Q1

REPORT INFORMATION
  Report Type: 
  Country: None (occurrence: None)
  Receive Date: 20070122
  Receipt Date: 20070111
  Transmission Date: 20070707
  Serious: Yes (Life-Threatening)
  Sender: FDA-Public Use
  Company Number: OMPQ-NO-0701S-0030

PATIENT
  Age: 30 Year
  Sex: Male

DRUGS (2)
  1. OMNIPAQUE 140 [Suspect]
     Indication: DRUG USE FOR UNKNOWN INDICATION
     Dosage: SINGLE DOSE, INTRAVASCULAR
     Dates: start: 20070111, end: 20070111
  2. OMNIPAQUE 140 [Suspect]

REACTIONS (1)
  - SEPTIC SHOCK [None]
